FAERS Safety Report 25505412 (Version 1)
Quarter: 2025Q3

REPORT INFORMATION
  Report Type: Report from Study
  Country: US (occurrence: US)
  Receive Date: 20250702
  Receipt Date: 20250702
  Transmission Date: 20251021
  Serious: Yes (Other)
  Sender: NOVARTIS
  Company Number: US-002147023-NVSC2025US069401

PATIENT
  Sex: Female

DRUGS (1)
  1. LEQVIO [Suspect]
     Active Substance: INCLISIRAN SODIUM
     Indication: Product used for unknown indication
     Route: 058
     Dates: start: 20250331

REACTIONS (6)
  - Cataract [Unknown]
  - Pain in extremity [Unknown]
  - Laryngitis [Unknown]
  - Post procedural inflammation [Unknown]
  - Hypersensitivity [Unknown]
  - Chronic obstructive pulmonary disease [Unknown]
